FAERS Safety Report 26035782 (Version 1)
Quarter: 2025Q4

REPORT INFORMATION
  Report Type: Spontaneous
  Country: US (occurrence: None)
  Receive Date: 20251112
  Receipt Date: 20251112
  Transmission Date: 20260118
  Serious: Yes (Death)
  Sender: FDA-CTU
  Company Number: None

PATIENT
  Age: 84 Year
  Sex: Male

DRUGS (1)
  1. HUMIRA [Suspect]
     Active Substance: ADALIMUMAB
     Indication: Rheumatoid arthritis
     Dosage: 40 MG EVERY OTHR WEEK SUBCUTANEOUS
     Route: 058
     Dates: start: 20210224, end: 20251030

REACTIONS (1)
  - Death [None]

NARRATIVE: CASE EVENT DATE: 20251030
